FAERS Safety Report 9406212 (Version 1)
Quarter: 2013Q3

REPORT INFORMATION
  Report Type: Spontaneous
  Country: AU (occurrence: US)
  Receive Date: 20130717
  Receipt Date: 20130717
  Transmission Date: 20140515
  Serious: No
  Sender: FDA-Public Use
  Company Number: AU-009507513-1307AUS006776

PATIENT
  Sex: 0

DRUGS (1)
  1. SAPHRIS [Suspect]
     Dosage: UNK
     Dates: start: 2013

REACTIONS (2)
  - Swollen tongue [Unknown]
  - Weight increased [Unknown]
